FAERS Safety Report 9896873 (Version 1)
Quarter: 2014Q1

REPORT INFORMATION
  Report Type: Spontaneous
  Country: US (occurrence: US)
  Receive Date: 20140214
  Receipt Date: 20140214
  Transmission Date: 20141002
  Serious: No
  Sender: FDA-Public Use
  Company Number: US-B.I. PHARMACEUTICALS,INC./RIDGEFIELD-2014-BI-05590BP

PATIENT
  Sex: Female

DRUGS (1)
  1. COMBIVENT [Suspect]
     Indication: DYSPNOEA
     Route: 055

REACTIONS (4)
  - Movement disorder [Unknown]
  - Agitation [Unknown]
  - Headache [Unknown]
  - Eye pain [Unknown]
